FAERS Safety Report 8657493 (Version 3)
Quarter: 2012Q4

REPORT INFORMATION
  Report Type: 
  Country: US (occurrence: US)
  Receive Date: 20120710
  Receipt Date: 20121004
  Transmission Date: 20130627
  Serious: Yes (Hospitalization)
  Sender: FDA-Public Use
  Company Number: PHEH2012US013221

PATIENT
  Sex: Female

DRUGS (10)
  1. METOPROLOL [Suspect]
     Dosage: 50 mg, BID
  2. NEXIUM [Concomitant]
  3. ZOCOR [Concomitant]
  4. COZAAR [Concomitant]
  5. POTASSIUM [Concomitant]
     Dosage: 20 mg, UNK
  6. FUROSEMIDE [Concomitant]
     Dosage: 20 mg, UNK
  7. CALCIUM WITH VITAMIN D [Concomitant]
  8. D3 [Concomitant]
  9. MULTI-VIT [Concomitant]
  10. BABY ASPIRIN [Concomitant]
     Dosage: UNK UKN, UNK

REACTIONS (3)
  - Blood glucose decreased [Unknown]
  - Headache [Unknown]
  - Drug intolerance [Unknown]
